FAERS Safety Report 20031614 (Version 8)
Quarter: 2023Q1

REPORT INFORMATION
  Report Type: Report from Study
  Country: JP (occurrence: JP)
  Receive Date: 20211103
  Receipt Date: 20230105
  Transmission Date: 20230417
  Serious: Yes (Hospitalization)
  Sender: FDA-Public Use
  Company Number: JP-ABBVIE-18S-087-2566238-00

PATIENT
  Age: 75 Year
  Sex: Female
  Weight: 35 kg

DRUGS (3)
  1. CARBIDOPA\LEVODOPA [Suspect]
     Active Substance: CARBIDOPA\LEVODOPA
     Indication: Parkinson^s disease
     Dosage: MD: 6 ML, CD: 2.5 ML/HR A-16 HRS, ED: 0.5 ML/UNIT-A 2
     Route: 050
     Dates: start: 20180314
  2. CARBIDOPA\LEVODOPA [Suspect]
     Active Substance: CARBIDOPA\LEVODOPA
  3. ROTIGOTINE [Concomitant]
     Active Substance: ROTIGOTINE
     Indication: Parkinson^s disease
     Route: 062

REACTIONS (6)
  - Skeletal injury [Unknown]
  - Fall [Unknown]
  - Device leakage [Recovered/Resolved]
  - Device dislocation [Recovered/Resolved]
  - Stoma site pain [Recovering/Resolving]
  - On and off phenomenon [Not Recovered/Not Resolved]

NARRATIVE: CASE EVENT DATE: 20181105
